FAERS Safety Report 9827529 (Version 1)
Quarter: 2014Q1

REPORT INFORMATION
  Report Type: Spontaneous
  Country: US (occurrence: US)
  Receive Date: 20140117
  Receipt Date: 20140117
  Transmission Date: 20141002
  Serious: No
  Sender: FDA-Public Use
  Company Number: US-BIOGENIDEC-2014BI001267

PATIENT
  Sex: Male

DRUGS (10)
  1. TECFIDERA [Suspect]
     Indication: MULTIPLE SCLEROSIS
     Route: 048
     Dates: start: 20130820, end: 20130826
  2. TECFIDERA [Suspect]
     Indication: MULTIPLE SCLEROSIS
     Route: 048
     Dates: start: 20130827
  3. COUMADIN [Concomitant]
  4. VENLAFAXINE [Concomitant]
  5. METFORMIN [Concomitant]
  6. VICODIN [Concomitant]
  7. ADVIL [Concomitant]
  8. LANTUS [Concomitant]
  9. HUMALOG [Concomitant]
  10. BACLOFEN [Concomitant]

REACTIONS (2)
  - Muscle spasms [Not Recovered/Not Resolved]
  - Flushing [Not Recovered/Not Resolved]
